FAERS Safety Report 4330611-3 (Version None)
Quarter: 2004Q2

REPORT INFORMATION
  Report Type: 
  Country: None (occurrence: None)
  Receive Date: 20040402
  Receipt Date: 20040302
  Transmission Date: 20050107
  Serious: Yes (Disabling)
  Sender: FDA-Public Use
  Company Number: DE-BRISTOL-MYERS SQUIBB COMPANY-12522306

PATIENT
  Age: 62 Year
  Sex: Female
  Weight: 62 kg

DRUGS (3)
  1. TAXOL [Suspect]
     Indication: OVARIAN CANCER
     Dosage: FIRST CYCLE ADMINISTRATION 21-NOV-2003; 135 MG/M2
     Route: 042
  2. RIBOCARBO [Suspect]
     Indication: OVARIAN CANCER
     Dosage: FIRST CYCLE ADMINISTRATION ON 21-NOV-2003
     Route: 042
  3. GEMZAR [Suspect]
     Indication: OVARIAN CANCER
     Dosage: 1ST DOSE - 21NOV03
     Route: 042
     Dates: start: 20040301, end: 20040301

REACTIONS (2)
  - DIVERTICULITIS [None]
  - WHITE BLOOD CELL COUNT DECREASED [None]
